FAERS Safety Report 8598184-7 (Version None)
Quarter: 2012Q3

REPORT INFORMATION
  Report Type: 
  Country: None (occurrence: None)
  Receive Date: 20120816
  Receipt Date: 20120813
  Transmission Date: 20120928
  Serious: No
  Sender: FDA-Public Use
  Company Number: US-TEVA-353815USA

PATIENT
  Age: 21 Year
  Sex: Female
  Weight: 63.56 kg

DRUGS (3)
  1. DIET PILL [Concomitant]
     Indication: WEIGHT DECREASED
     Route: 048
  2. PLAN B ONE-STEP [Suspect]
     Indication: POST COITAL CONTRACEPTION
     Dosage: 1.5 MILLIGRAM DAILY;
     Route: 048
     Dates: start: 20120808, end: 20120808
  3. DIET PILL [Concomitant]
     Route: 048

REACTIONS (2)
  - FATIGUE [None]
  - ADNEXA UTERI PAIN [None]
